FAERS Safety Report 10024374 (Version 9)
Quarter: 2014Q4

REPORT INFORMATION
  Report Type: Report from Study
  Country: CA (occurrence: CA)
  Receive Date: 20140320
  Receipt Date: 20141022
  Transmission Date: 20150528
  Serious: Yes (Other)
  Sender: FDA-Public Use
  Company Number: CA-ROCHE-1359052

PATIENT
  Age: 57 Year
  Sex: Male
  Weight: 120.2 kg

DRUGS (9)
  1. DEXILANT [Concomitant]
     Active Substance: DEXLANSOPRAZOLE
  2. DIPHENHYDRAMINE HCL [Concomitant]
     Active Substance: DIPHENHYDRAMINE HYDROCHLORIDE
     Route: 048
     Dates: start: 20140814
  3. METHYLPREDNISOLONE. [Concomitant]
     Active Substance: METHYLPREDNISOLONE
     Route: 042
     Dates: start: 20140814
  4. BABY ASPIRIN [Concomitant]
     Active Substance: ASPIRIN
     Route: 065
  5. PREDNISOLON [Concomitant]
     Active Substance: PREDNISOLONE
  6. ACETAMINOPHEN. [Concomitant]
     Active Substance: ACETAMINOPHEN
     Route: 048
     Dates: start: 20140814
  7. ACTEMRA [Suspect]
     Active Substance: TOCILIZUMAB
     Indication: RHEUMATOID ARTHRITIS
     Route: 042
     Dates: start: 20140128, end: 20140623
  8. RITUXAN [Suspect]
     Active Substance: RITUXIMAB
     Indication: RHEUMATOID ARTHRITIS
     Dosage: ON DAY 1 AND 15?THE LAST INFUSION ON 14/AUG/2014
     Route: 042
     Dates: start: 20140814
  9. VOLTAREN RAPIDE [Concomitant]
     Route: 065

REACTIONS (8)
  - Drug ineffective [Unknown]
  - Infusion related reaction [Recovered/Resolved]
  - Hepatic enzyme increased [Unknown]
  - Rectal haemorrhage [Unknown]
  - Bone pain [Not Recovered/Not Resolved]
  - Blood glucose increased [Unknown]
  - Rash [Recovered/Resolved]
  - Influenza [Not Recovered/Not Resolved]

NARRATIVE: CASE EVENT DATE: 20140128
